FAERS Safety Report 4530700-4 (Version None)
Quarter: 2004Q4

REPORT INFORMATION
  Report Type: 
  Country: None (occurrence: None)
  Receive Date: 20041217
  Receipt Date: 20040831
  Transmission Date: 20050328
  Serious: Yes (Hospitalization)
  Sender: FDA-Public Use
  Company Number: GB-GLAXOSMITHKLINE-B0344071A

PATIENT
  Age: 57 Year
  Sex: Female
  Weight: 70 kg

DRUGS (3)
  1. SEROXAT [Suspect]
     Indication: DEPRESSION
     Dosage: 30MG PER DAY
     Route: 048
     Dates: start: 20031016, end: 20031016
  2. NO CONCURRENT MEDICATION [Concomitant]
  3. SERTRALINE [Concomitant]
     Indication: DEPRESSION
     Route: 065

REACTIONS (5)
  - ANXIETY [None]
  - DEPERSONALISATION [None]
  - DEPRESSION [None]
  - DEREALISATION [None]
  - FEELING ABNORMAL [None]
